FAERS Safety Report 6535595-5 (Version None)
Quarter: 2010Q1

REPORT INFORMATION
  Report Type: 
  Country: None (occurrence: None)
  Receive Date: 20100113
  Receipt Date: 20100104
  Transmission Date: 20100710
  Serious: Yes (Hospitalization, Disabling)
  Sender: FDA-Public Use
  Company Number: PHHO2009BE14275

PATIENT
  Sex: Male
  Weight: 47.6 kg

DRUGS (5)
  1. TACROLIMUS [Suspect]
     Indication: LIVER TRANSPLANT
     Dosage: UNK
     Dates: start: 20091018
  2. CERTICAN [Suspect]
     Indication: LIVER TRANSPLANT
     Dosage: UNK
  3. CORTICOSTEROIDS [Concomitant]
     Indication: LIVER TRANSPLANT
  4. MEDROL [Concomitant]
     Indication: LIVER TRANSPLANT
  5. CELLCEPT [Concomitant]
     Indication: LIVER TRANSPLANT
     Dosage: UNK

REACTIONS (4)
  - ABDOMINAL PAIN [None]
  - BILOMA [None]
  - BLOOD TEST ABNORMAL [None]
  - OEDEMA PERIPHERAL [None]
